FAERS Safety Report 12979718 (Version 2)
Quarter: 2016Q4

REPORT INFORMATION
  Report Type: Spontaneous
  Country: UG (occurrence: UG)
  Receive Date: 20161128
  Receipt Date: 20161227
  Transmission Date: 20170207
  Serious: Yes (Death, Other)
  Sender: FDA-Public Use
  Company Number: UG-GLAXOSMITHKLINE-UG2016GSK173354

PATIENT
  Age: 20 Month
  Sex: Female

DRUGS (3)
  1. CEFTRIAXONE. [Concomitant]
     Active Substance: CEFTRIAXONE
     Indication: BACTERAEMIA
     Dosage: 1 G, UNK
     Route: 042
     Dates: start: 201606, end: 201606
  2. AVAMYS [Suspect]
     Active Substance: FLUTICASONE FUROATE
     Indication: NASAL CONGESTION
     Dosage: 55 UNK, QD
     Route: 045
  3. GENTAMICIN. [Concomitant]
     Active Substance: GENTAMICIN
     Indication: BACTERAEMIA
     Dosage: UNK
     Route: 042
     Dates: start: 201606, end: 201606

REACTIONS (2)
  - Respiratory distress [Unknown]
  - Death [Fatal]

NARRATIVE: CASE EVENT DATE: 201606
